FAERS Safety Report 11880855 (Version 1)
Quarter: 2015Q4

REPORT INFORMATION
  Report Type: Spontaneous
  Country: JP (occurrence: JP)
  Receive Date: 20151230
  Receipt Date: 20151230
  Transmission Date: 20160305
  Serious: Yes (Other)
  Sender: FDA-Public Use
  Company Number: JP-MYLANLABS-2015M1026114

PATIENT

DRUGS (4)
  1. RITODRINE [Concomitant]
     Active Substance: RITODRINE
     Indication: UTERINE CONTRACTIONS DURING PREGNANCY
     Dosage: UNK, PRN
     Route: 048
  2. MAGNESIUM OXIDE. [Suspect]
     Active Substance: MAGNESIUM OXIDE
     Indication: PRODUCT USED FOR UNKNOWN INDICATION
     Route: 048
  3. ATONIN-O [Concomitant]
     Indication: UTERINE CONTRACTIONS DURING PREGNANCY
     Dosage: 1 A
     Route: 042
  4. PURGATIVE [Suspect]
     Active Substance: UNSPECIFIED INGREDIENT
     Indication: PRODUCT USED FOR UNKNOWN INDICATION
     Route: 048

REACTIONS (4)
  - Intentional overdose [Unknown]
  - Pseudo-Bartter syndrome [Unknown]
  - Maternal exposure during pregnancy [Unknown]
  - Metabolic alkalosis [Recovering/Resolving]
